FAERS Safety Report 8481832-X (Version None)
Quarter: 2012Q3

REPORT INFORMATION
  Report Type: 
  Country: None (occurrence: None)
  Receive Date: 20120702
  Receipt Date: 20120626
  Transmission Date: 20120928
  Serious: Yes (Hospitalization, Other)
  Sender: FDA-Public Use
  Company Number: US-PFIZER INC-2012154029

PATIENT
  Sex: Male
  Weight: 90.7 kg

DRUGS (6)
  1. LYRICA [Suspect]
     Indication: NEURALGIA
     Dosage: 75 MG, 2X/DAY
     Route: 048
     Dates: start: 20120523, end: 20120618
  2. OXYCONTIN [Concomitant]
     Indication: NEURALGIA
     Dosage: 80MG EVERY 6 HOURS AS NEEDED
  3. VENLAFAXINE [Concomitant]
     Indication: PAIN
     Dosage: 37.5MG 4 CAPSULES DAILY
     Route: 048
  4. LYRICA [Suspect]
     Dosage: 75MG DAILY
     Route: 048
     Dates: start: 20120619, end: 20120622
  5. DILAUDID [Concomitant]
     Indication: MULTIPLE SCLEROSIS
     Dosage: 8MG EVERY 4-6 HOURS AS NEEDED
  6. LITHIUM CARBONATE [Concomitant]
     Indication: DEPRESSION
     Dosage: 300MG TWO TABLETS AT BED TIME
     Route: 048

REACTIONS (4)
  - FEELING ABNORMAL [None]
  - READING DISORDER [None]
  - FORMICATION [None]
  - CONFUSIONAL STATE [None]
